FAERS Safety Report 7727347-5 (Version None)
Quarter: 2011Q3

REPORT INFORMATION
  Report Type: 
  Country: None (occurrence: None)
  Receive Date: 20110902
  Receipt Date: 20110825
  Transmission Date: 20111222
  Serious: Yes (Hospitalization)
  Sender: FDA-Public Use
  Company Number: GB-JNJFOC-20110812167

PATIENT
  Sex: Female

DRUGS (1)
  1. NICORETTE [Suspect]
     Indication: PRODUCT USED FOR UNKNOWN INDICATION
     Dosage: 10-12 PIECES OF GUM PER DAY
     Route: 048
     Dates: start: 20030101

REACTIONS (2)
  - INTENTIONAL DRUG MISUSE [None]
  - INTESTINAL RESECTION [None]
